FAERS Safety Report 14332973 (Version 1)
Quarter: 2017Q4

REPORT INFORMATION
  Report Type: Report from Study
  Country: BR (occurrence: BR)
  Receive Date: 20171228
  Receipt Date: 20171228
  Transmission Date: 20180321
  Serious: Yes (Other)
  Sender: FDA-Public Use
  Company Number: PHHY2017BR073650

PATIENT
  Sex: Female
  Weight: 77 kg

DRUGS (5)
  1. XOLAIR [Suspect]
     Active Substance: OMALIZUMAB
     Indication: ASTHMA
     Dosage: 1 DF, QMO (1 LITTLE AMPOULE, EVERY 28 DAYS)
     Route: 058
     Dates: start: 2005
  2. FORASEQ [Suspect]
     Active Substance: BUDESONIDE\FORMOTEROL FUMARATE
     Indication: ASTHMA
     Dosage: 1 DF, Q12H
     Route: 055
     Dates: start: 2005
  3. METFORMIN [Concomitant]
     Active Substance: METFORMIN HYDROCHLORIDE
     Indication: DIABETES MELLITUS
     Dosage: 2 DF, QD (FOR 3 YEARS)
     Route: 048
  4. LOSARTAN. [Concomitant]
     Active Substance: LOSARTAN
     Indication: HYPERTENSION
     Dosage: 2 DF, QD (FOR 5 YEARS)
     Route: 048
  5. DECOR PLUS [Concomitant]
     Indication: SINUSITIS
     Dosage: 32 MG, QD (FOR 8 YEARS)
     Route: 006

REACTIONS (9)
  - Diabetes mellitus [Recovering/Resolving]
  - Weight increased [Not Recovered/Not Resolved]
  - Hypertension [Recovering/Resolving]
  - Asthma [Recovering/Resolving]
  - Chest discomfort [Recovering/Resolving]
  - Fatigue [Recovering/Resolving]
  - Malaise [Unknown]
  - Asthmatic crisis [Unknown]
  - Chronic sinusitis [Recovering/Resolving]
